FAERS Safety Report 4790184-8 (Version None)
Quarter: 2005Q4

REPORT INFORMATION
  Report Type: 
  Country: None (occurrence: None)
  Receive Date: 20051006
  Receipt Date: 20050927
  Transmission Date: 20060501
  Serious: Yes (Other)
  Sender: FDA-Public Use
  Company Number: 2005PK01798

PATIENT
  Sex: Female

DRUGS (2)
  1. NEXIUM [Suspect]
     Route: 048
     Dates: start: 20050902, end: 20050904
  2. NEXIUM [Suspect]
     Route: 048
     Dates: start: 20050905, end: 20050915

REACTIONS (1)
  - SKIN EXFOLIATION [None]
